FAERS Safety Report 5671551-7 (Version None)
Quarter: 2008Q1

REPORT INFORMATION
  Report Type: 
  Country: None (occurrence: None)
  Receive Date: 20080318
  Receipt Date: 20080306
  Transmission Date: 20080703
  Serious: Yes (Congenital Anomaly)
  Sender: FDA-Public Use
  Company Number: CH-PFIZER INC-2008023268

PATIENT

DRUGS (5)
  1. ALDACTONE [Suspect]
     Indication: ESSENTIAL HYPERTENSION
     Dosage: DAILY DOSE:25MG
     Route: 064
  2. ATENOLOL [Suspect]
     Indication: ESSENTIAL HYPERTENSION
     Dosage: DAILY DOSE:50MG
     Route: 048
  3. LISINOPRIL [Suspect]
     Indication: ESSENTIAL HYPERTENSION
     Dosage: DAILY DOSE:5MG
     Route: 048
  4. COSAAR PLUS [Suspect]
     Indication: ESSENTIAL HYPERTENSION
     Route: 048
  5. ASPIRIN [Suspect]
     Indication: ESSENTIAL HYPERTENSION
     Dosage: DAILY DOSE:100MG
     Route: 048

REACTIONS (2)
  - DRUG EXPOSURE DURING PREGNANCY [None]
  - FOETAL DISORDER [None]
